FAERS Safety Report 10184673 (Version 1)
Quarter: 2014Q2

REPORT INFORMATION
  Report Type: Spontaneous
  Country: JP (occurrence: None)
  Receive Date: 20140519
  Receipt Date: 20140519
  Transmission Date: 20141212
  Serious: Yes (Other)
  Sender: FDA-Public Use
  Company Number: 2014-19578

PATIENT
  Sex: 0

DRUGS (1)
  1. EYLEA [Suspect]
     Indication: RETINAL VEIN OCCLUSION

REACTIONS (2)
  - Visual acuity reduced [None]
  - Retinal haemorrhage [None]
